FAERS Safety Report 6131745-3 (Version None)
Quarter: 2009Q1

REPORT INFORMATION
  Report Type: 
  Country: None (occurrence: None)
  Receive Date: 20090325
  Receipt Date: 20090316
  Transmission Date: 20090719
  Serious: Yes (Death)
  Sender: FDA-Public Use
  Company Number: ZA-ROCHE-622004

PATIENT
  Age: 21 Year
  Sex: Male

DRUGS (2)
  1. ROACCUTANE [Suspect]
     Indication: ACNE
     Dosage: TREATED FOR 4 MONTHS
     Route: 048
     Dates: start: 20080101
  2. ROACCUTANE [Suspect]
     Dosage: SECOND COURSE
     Route: 048
     Dates: start: 20090201

REACTIONS (1)
  - COMPLETED SUICIDE [None]
